FAERS Safety Report 19978399 (Version 1)
Quarter: 2021Q4

REPORT INFORMATION
  Report Type: Spontaneous
  Country: US (occurrence: US)
  Receive Date: 20211019
  Receipt Date: 20211019
  Transmission Date: 20220303
  Serious: Yes (Other)
  Sender: FDA-Public Use
  Company Number: None

PATIENT
  Age: 61 Year
  Sex: Male

DRUGS (1)
  1. SUTENT [Suspect]
     Active Substance: SUNITINIB MALATE
     Indication: Renal cell carcinoma
     Route: 048
     Dates: start: 20210915

REACTIONS (3)
  - Lip blister [None]
  - Blister [None]
  - Therapy cessation [None]

NARRATIVE: CASE EVENT DATE: 20210915
